FAERS Safety Report 6028970-9 (Version None)
Quarter: 2009Q1

REPORT INFORMATION
  Report Type: 
  Country: None (occurrence: None)
  Receive Date: 20090106
  Receipt Date: 20081229
  Transmission Date: 20090719
  Serious: Yes (Other)
  Sender: FDA-Public Use
  Company Number: PHHY2008BR33460

PATIENT
  Sex: Male

DRUGS (6)
  1. FORASEQ [Suspect]
     Indication: INFLUENZA
     Dosage: 12/400 MCG, BID
     Dates: start: 20000101
  2. ENALAPRIL MALEATE [Concomitant]
  3. SIMVASTATIN [Concomitant]
  4. DRUG THERAPY NOS [Concomitant]
  5. SERETIDE ^ALLEN + HANBURYS LTD^ [Concomitant]
     Indication: INFLUENZA
     Dosage: 50 / 250 MCG, BID
  6. CLARITHROMYCIN [Concomitant]
     Dosage: 500 MG, BID
     Route: 048

REACTIONS (8)
  - CHEST DISCOMFORT [None]
  - CONDITION AGGRAVATED [None]
  - COUGH [None]
  - DYSPNOEA [None]
  - LUNG ABSCESS [None]
  - LUNG DISORDER [None]
  - NASOPHARYNGITIS [None]
  - RADIOGRAPHY GUIDED ASPIRATION [None]
